FAERS Safety Report 10105552 (Version 2)
Quarter: 2014Q2

REPORT INFORMATION
  Report Type: Spontaneous
  Country: US (occurrence: US)
  Receive Date: 20140424
  Receipt Date: 20140508
  Transmission Date: 20141212
  Serious: Yes (Death, Hospitalization)
  Sender: FDA-Public Use
  Company Number: US-B.I. PHARMACEUTICALS,INC./RIDGEFIELD-2014-BI-18258BP

PATIENT
  Sex: Male

DRUGS (19)
  1. SPIRIVA [Suspect]
     Indication: CHRONIC OBSTRUCTIVE PULMONARY DISEASE
     Dosage: 18 MCG
     Route: 055
     Dates: start: 2007, end: 20121025
  2. ALBUTEROL [Concomitant]
     Indication: CHRONIC OBSTRUCTIVE PULMONARY DISEASE
     Route: 055
  3. ALBUTEROL [Concomitant]
     Dosage: DOSE PER APPLICATION:90 MCG PER ACTUATION
     Route: 065
  4. ADVAIR [Concomitant]
     Indication: CHRONIC OBSTRUCTIVE PULMONARY DISEASE
     Route: 055
  5. SENNA [Concomitant]
     Dosage: 17.2 MG
     Route: 048
  6. ACETAMINOPHEN [Concomitant]
     Route: 065
  7. BUDESONIDE [Concomitant]
     Route: 065
  8. PREDNISONE [Concomitant]
     Dosage: 10 MG
     Route: 065
  9. XENADERM [Concomitant]
     Route: 065
  10. ALBUTEROL SULFATE [Concomitant]
     Dosage: DOSE PER APPLICATION: 2.5 MG / 0.5ML
     Route: 065
  11. CALCITONIN NASAL SPRAY [Concomitant]
     Dosage: FORMULATION: NASAL SPRAY
     Route: 065
  12. CHLORHEXIDIN [Concomitant]
     Dosage: DOSE PER APPLICATION: .12% SOLUTION
     Route: 065
  13. CHLORHEXIDIN [Concomitant]
     Dosage: DOSE PER APPLICATION: 0.12% CHLORHEXIDINE SOLUTION
     Route: 065
  14. ASPIRIN [Concomitant]
     Dosage: 81 MG
     Route: 065
  15. LORATADINE [Concomitant]
     Dosage: 10 MG
     Route: 065
  16. NYSTATIN [Concomitant]
     Route: 065
  17. DILTIAZEM [Concomitant]
     Dosage: 90 MG
     Route: 065
  18. OMEPRAZOLE [Concomitant]
     Dosage: 80 MG
     Route: 065
  19. PRAVASTATIN [Concomitant]
     Route: 065

REACTIONS (2)
  - Pneumonia [Fatal]
  - Chronic obstructive pulmonary disease [Fatal]
